FAERS Safety Report 7865644-3 (Version None)
Quarter: 2011Q4

REPORT INFORMATION
  Report Type: 
  Country: None (occurrence: None)
  Receive Date: 20111028
  Receipt Date: 20110128
  Transmission Date: 20120403
  Serious: No
  Sender: FDA-Public Use
  Company Number: US-GLAXOSMITHKLINE-A0910198A

PATIENT
  Age: 60 Year
  Sex: Female

DRUGS (2)
  1. ADVAIR DISKUS 100/50 [Suspect]
     Indication: ASTHMA
     Dosage: 2PUFF TWICE PER DAY
     Route: 055
     Dates: end: 20110127
  2. PROVENTIL [Concomitant]

REACTIONS (5)
  - INFLUENZA [None]
  - INFLUENZA LIKE ILLNESS [None]
  - CONDITION AGGRAVATED [None]
  - MYALGIA [None]
  - MUSCULAR WEAKNESS [None]
